FAERS Safety Report 19057448 (Version 1)
Quarter: 2021Q1

REPORT INFORMATION
  Report Type: Other
  Country: ZA (occurrence: ZA)
  Receive Date: 20210324
  Receipt Date: 20210324
  Transmission Date: 20210420
  Serious: Yes (Hospitalization, Other)
  Sender: FDA-Public Use
  Company Number: ZA-DEXPHARM-20210366

PATIENT
  Age: 53 Year
  Sex: Female

DRUGS (3)
  1. FUROSEMIDE. [Interacting]
     Active Substance: FUROSEMIDE
  2. SPIRONOLACTONE. [Interacting]
     Active Substance: SPIRONOLACTONE
  3. LANSOPRAZOLE. [Suspect]
     Active Substance: LANSOPRAZOLE

REACTIONS (2)
  - Drug interaction [Unknown]
  - Hyponatraemia [Unknown]
